FAERS Safety Report 4594688-2 (Version None)
Quarter: 2005Q1

REPORT INFORMATION
  Report Type: 
  Country: None (occurrence: None)
  Receive Date: 20050301
  Receipt Date: 20041227
  Transmission Date: 20050727
  Serious: Yes (Other)
  Sender: FDA-Public Use
  Company Number: US-BRISTOL-MYERS SQUIBB COMPANY-12807442

PATIENT
  Age: 63 Year
  Sex: Female
  Weight: 92 kg

DRUGS (5)
  1. ERBITUX [Suspect]
     Indication: COLON CANCER METASTATIC
     Route: 042
     Dates: start: 20041227, end: 20041227
  2. BENADRYL [Concomitant]
     Indication: PREMEDICATION
     Route: 042
     Dates: start: 20041227, end: 20041227
  3. DECADRON [Concomitant]
     Indication: PREMEDICATION
     Route: 042
     Dates: start: 20041227, end: 20041227
  4. KYTRIL [Concomitant]
     Indication: PREMEDICATION
     Route: 042
     Dates: start: 20041227, end: 20041227
  5. COUMADIN [Concomitant]

REACTIONS (5)
  - ABDOMINAL PAIN UPPER [None]
  - HYPERSENSITIVITY [None]
  - NAUSEA [None]
  - RASH GENERALISED [None]
  - VOMITING [None]
